FAERS Safety Report 22646191 (Version 1)
Quarter: 2023Q2

REPORT INFORMATION
  Report Type: Spontaneous
  Country: GB (occurrence: GB)
  Receive Date: 20230627
  Receipt Date: 20230627
  Transmission Date: 20230721
  Serious: Yes (Disabling)
  Sender: FDA-Public Use
  Company Number: None

PATIENT
  Age: 73 Year
  Sex: Male
  Weight: 110 kg

DRUGS (17)
  1. EDOXABAN [Suspect]
     Active Substance: EDOXABAN
     Indication: Ill-defined disorder
     Dosage: UNK
     Route: 065
     Dates: start: 20230623
  2. ALLOPURINOL [Concomitant]
     Active Substance: ALLOPURINOL
     Indication: Ill-defined disorder
     Dosage: 1 DF, QD (ONE TO BE TAKEN DAILY)
     Route: 065
     Dates: start: 20221121
  3. BUNOV [Concomitant]
     Indication: Ill-defined disorder
     Dosage: UNK (BUPRENORPHINE) APPLY ONE PATCH AND REPLACE EVE...
     Route: 065
     Dates: start: 20221202
  4. DULOXETINE [Concomitant]
     Active Substance: DULOXETINE
     Indication: Ill-defined disorder
     Dosage: 1 DF, QD (1 AT NIGHT.)
     Route: 065
     Dates: start: 20230505, end: 20230602
  5. EDOXABAN [Concomitant]
     Active Substance: EDOXABAN
     Indication: Ill-defined disorder
     Dosage: 1 DF, QD (TAKE ONE DAILY)
     Route: 065
     Dates: start: 20230512
  6. ENSTILAR [Concomitant]
     Active Substance: BETAMETHASONE DIPROPIONATE\CALCIPOTRIENE HYDRATE
     Indication: Ill-defined disorder
     Dosage: UNK APPLY ONCE DAILY WHEN REQUIRED, FOR UP TO 4 WEEKS)
     Route: 065
     Dates: start: 20221121
  7. GABAPENTIN [Concomitant]
     Active Substance: GABAPENTIN
     Indication: Ill-defined disorder
     Dosage: 2 DF, TID (2 TO BE TAKEN THREE TIMES DAILY)
     Route: 065
     Dates: start: 20221121
  8. BRODALUMAB [Concomitant]
     Active Substance: BRODALUMAB
     Indication: Ill-defined disorder
     Dosage: UNK (HOSPITAL ONLY SCRIPT. (BRODALUMAB))
     Route: 065
     Dates: start: 20210423
  9. LACIDIPINE [Concomitant]
     Active Substance: LACIDIPINE
     Indication: Ill-defined disorder
     Dosage: 1 DF, QD (TAKE ONE DAILY)
     Route: 065
     Dates: start: 20230109
  10. LANSOPRAZOLE [Concomitant]
     Active Substance: LANSOPRAZOLE
     Indication: Ill-defined disorder
     Dosage: 1 DF, QD (TAKE ONE ONCE DAILY 30 MINUTES BEFORE FOOD)
     Route: 065
     Dates: start: 20230119
  11. POLYETHYLENE GLYCOL 3350\POTASSIUM CHLORIDE\SODIUM BICARBONATE\SODIUM [Concomitant]
     Active Substance: POLYETHYLENE GLYCOL 3350\POTASSIUM CHLORIDE\SODIUM BICARBONATE\SODIUM CHLORIDE
     Indication: Ill-defined disorder
     Dosage: UNK (1-SACHET DAILY (REGULARLY)... INCREASING TO UP ...)
     Route: 065
     Dates: start: 20221216
  12. MOXONIDINE [Concomitant]
     Active Substance: MOXONIDINE
     Indication: Ill-defined disorder
     Dosage: 1 DF, BID (1 TO BE TAKEN TWICE DAILY)
     Route: 065
     Dates: start: 20221121
  13. RAMIPRIL [Concomitant]
     Active Substance: RAMIPRIL
     Indication: Ill-defined disorder
     Dosage: 1 DF, QID (TAKE ONE DAILY)
     Route: 065
     Dates: start: 20221121
  14. RIVAROXABAN [Concomitant]
     Active Substance: RIVAROXABAN
     Indication: Ill-defined disorder
     Dosage: 1 DF, QD (TAKE ONE DAILY WITH A MEAL, BLOOD THINNER TABLET.)
     Route: 065
     Dates: start: 20230623
  15. SENNA LEAF [Concomitant]
     Active Substance: SENNA LEAF
     Indication: Ill-defined disorder
     Dosage: 1 DF, QD (TAKE ONE AT NIGHT)
     Route: 065
     Dates: start: 20230227
  16. SIMVASTATIN [Concomitant]
     Active Substance: SIMVASTATIN
     Indication: Ill-defined disorder
     Dosage: 1 DF, QD (ONE TO BE TAKEN AT NIGHT)
     Route: 065
     Dates: start: 20221121
  17. ZOPICLONE [Concomitant]
     Active Substance: ZOPICLONE
     Indication: Ill-defined disorder
     Dosage: UNK UNK, AS NEEDED (TAKE ONE OR TWO AT NIGHT WHEN REQUIRED FOR SHOR...)
     Route: 065
     Dates: start: 20230602, end: 20230609

REACTIONS (1)
  - Restless legs syndrome [Recovered/Resolved]

NARRATIVE: CASE EVENT DATE: 20230623
